FAERS Safety Report 13333566 (Version 3)
Quarter: 2017Q2

REPORT INFORMATION
  Report Type: Report from Study
  Country: IT (occurrence: IT)
  Receive Date: 20170314
  Receipt Date: 20170403
  Transmission Date: 20170830
  Serious: Yes (Hospitalization)
  Sender: FDA-Public Use
  Company Number: IT-TEVA-749190ACC

PATIENT
  Age: 74 Year
  Sex: Female

DRUGS (3)
  1. CLOZAPINE. [Suspect]
     Active Substance: CLOZAPINE
     Indication: DRUG ADMINISTRATION ERROR
     Route: 048
     Dates: start: 20161030, end: 20161030
  2. ENTACT - H. LUNDBECK A/S [Suspect]
     Active Substance: ESCITALOPRAM OXALATE
     Indication: DRUG ADMINISTRATION ERROR
     Route: 048
     Dates: start: 20161030, end: 20161030
  3. LORAZEPAM. [Suspect]
     Active Substance: LORAZEPAM
     Indication: DRUG ADMINISTRATION ERROR
     Route: 048
     Dates: start: 20161030, end: 20161030

REACTIONS (3)
  - Sopor [Unknown]
  - Accidental exposure to product [Unknown]
  - Drug administration error [Unknown]

NARRATIVE: CASE EVENT DATE: 20161030
